FAERS Safety Report 8772680 (Version 1)
Quarter: 2012Q4

REPORT INFORMATION
  Report Type: 
  Country: US (occurrence: US)
  Receive Date: 20120905
  Receipt Date: 20120905
  Transmission Date: 20130627
  Serious: Yes (Death, Other)
  Sender: FDA-Public Use
  Company Number: US-NOVOPROD-359014

PATIENT
  Sex: Female

DRUGS (1)
  1. NOVOSEVEN RT [Suspect]
     Indication: HAEMORRHAGE
     Dosage: UNK
     Route: 042
     Dates: start: 201207, end: 201207

REACTIONS (2)
  - Intestinal perforation [Unknown]
  - Death [Fatal]
